FAERS Safety Report 14709709 (Version 1)
Quarter: 2018Q2

REPORT INFORMATION
  Report Type: Spontaneous
  Country: HR (occurrence: HR)
  Receive Date: 20180403
  Receipt Date: 20180403
  Transmission Date: 20180711
  Serious: Yes (Congenital Anomaly, Other)
  Sender: FDA-Public Use
  Company Number: HR-ARBOR PHARMACEUTICALS, LLC-HR-2018ARB000407

PATIENT
  Sex: Male

DRUGS (1)
  1. GABAPENTIN ENACARBIL [Suspect]
     Active Substance: GABAPENTIN ENACARBIL
     Indication: PRODUCT USED FOR UNKNOWN INDICATION
     Dosage: UNK
     Route: 015

REACTIONS (5)
  - Foetal growth restriction [Unknown]
  - Atrial septal defect [Unknown]
  - Psychomotor skills impaired [Unknown]
  - Myoclonic epilepsy [Not Recovered/Not Resolved]
  - Foetal exposure during pregnancy [Unknown]
